FAERS Safety Report 5659573-3 (Version None)
Quarter: 2008Q1

REPORT INFORMATION
  Report Type: 
  Country: None (occurrence: None)
  Receive Date: 20080311
  Receipt Date: 20080228
  Transmission Date: 20080703
  Serious: Yes (Other)
  Sender: FDA-Public Use
  Company Number: JP-JNJFOC-20071102620

PATIENT
  Sex: Female
  Weight: 52 kg

DRUGS (17)
  1. INFLIXIMAB [Suspect]
     Route: 042
  2. INFLIXIMAB [Suspect]
     Route: 042
  3. INFLIXIMAB [Suspect]
     Route: 042
  4. INFLIXIMAB [Suspect]
     Route: 042
  5. INFLIXIMAB [Suspect]
     Indication: RHEUMATOID ARTHRITIS
     Route: 042
  6. RHEUMATREX [Suspect]
     Indication: RHEUMATOID ARTHRITIS
     Route: 048
  7. MEDROL [Concomitant]
     Route: 048
  8. FOLIAMIN [Concomitant]
     Route: 048
  9. FOLIAMIN [Concomitant]
     Route: 048
  10. LOXOPROFEN [Concomitant]
     Indication: RHEUMATOID ARTHRITIS
  11. ADRENAL HORMONE PREPARATION [Concomitant]
     Indication: RHEUMATOID ARTHRITIS
  12. LOXONIN [Concomitant]
     Route: 048
  13. LOXONIN [Concomitant]
     Indication: RHEUMATOID ARTHRITIS
     Route: 048
  14. SELBEX [Concomitant]
     Indication: RHEUMATOID ARTHRITIS
     Route: 048
  15. METALCAPTASE [Concomitant]
     Indication: RHEUMATOID ARTHRITIS
     Route: 048
  16. PREDONINE [Concomitant]
     Indication: RHEUMATOID ARTHRITIS
     Route: 048
  17. ARTZ [Concomitant]
     Indication: RHEUMATOID ARTHRITIS

REACTIONS (2)
  - BREAST NEOPLASM [None]
  - INTERSTITIAL LUNG DISEASE [None]
